FAERS Safety Report 4465499-3 (Version None)
Quarter: 2004Q4

REPORT INFORMATION
  Report Type: 
  Country: None (occurrence: None)
  Receive Date: 20041001
  Receipt Date: 20040907
  Transmission Date: 20050328
  Serious: Yes (Hospitalization)
  Sender: FDA-Public Use
  Company Number: CIO04020181

PATIENT
  Age: 91 Year
  Sex: Female
  Weight: 45.4 kg

DRUGS (1)
  1. PEPTO-BISMOL ORIGINAL FORMULA, ORIGINAL FLAVOR(BISMUTH SUBSALICYLATE 2 [Suspect]
     Dosage: 30 ML, 3 /DAY FOR 1 DAY, ORAL
     Route: 048
     Dates: start: 20040904, end: 20040904

REACTIONS (2)
  - FAECES DISCOLOURED [None]
  - HAEMATOCHEZIA [None]
